FAERS Safety Report 9135947 (Version 1)
Quarter: 2013Q1

REPORT INFORMATION
  Report Type: Spontaneous
  Country: US (occurrence: US)
  Receive Date: 20130304
  Receipt Date: 20130304
  Transmission Date: 20140127
  Serious: No
  Sender: FDA-Public Use
  Company Number: US-ABBOTT-12P-163-0920300-00

PATIENT
  Sex: Male

DRUGS (6)
  1. ANDROGEL 1% [Suspect]
     Indication: BLOOD TESTOSTERONE DECREASED
     Dates: start: 201111
  2. PAXIL [Concomitant]
     Indication: DEPRESSION
  3. METOPROLOL [Concomitant]
     Indication: CARDIAC DISORDER
  4. LISINOPRIL [Concomitant]
     Indication: BLOOD PRESSURE
  5. ATORVASTATIN [Concomitant]
     Indication: BLOOD CHOLESTEROL
  6. PLAVIX [Concomitant]
     Indication: CARDIAC DISORDER

REACTIONS (1)
  - Drug administered at inappropriate site [None]
